FAERS Safety Report 13720890 (Version 2)
Quarter: 2017Q3

REPORT INFORMATION
  Report Type: Report from Study
  Country: None (occurrence: BR)
  Receive Date: 20170706
  Receipt Date: 20170712
  Transmission Date: 20171127
  Serious: Yes (Death, Hospitalization, Other)
  Sender: FDA-Public Use
  Company Number: BR-ABBVIE-17K-020-2028924-00

PATIENT
  Age: 64 Year
  Sex: Female
  Weight: 60 kg

DRUGS (1)
  1. HUMIRA [Suspect]
     Active Substance: ADALIMUMAB
     Indication: PSORIATIC ARTHROPATHY
     Route: 058
     Dates: start: 20150501, end: 20170514

REACTIONS (7)
  - Pneumonia [Fatal]
  - Cholelithiasis [Unknown]
  - Bronchitis chronic [Unknown]
  - Platelet count decreased [Unknown]
  - Cardiopulmonary failure [Not Recovered/Not Resolved]
  - Urine analysis abnormal [Unknown]
  - Lung infection [Unknown]

NARRATIVE: CASE EVENT DATE: 2017
